FAERS Safety Report 9425517 (Version 1)
Quarter: 2013Q3

REPORT INFORMATION
  Report Type: Spontaneous
  Country: US (occurrence: US)
  Receive Date: 20130729
  Receipt Date: 20130729
  Transmission Date: 20140515
  Serious: No
  Sender: FDA-Public Use
  Company Number: US-MYLANLABS-2012S1012895

PATIENT
  Age: 58 Year
  Sex: Female
  Weight: 68.04 kg

DRUGS (3)
  1. LEVOTHYROXINE SODIUM TABLETS, USP [Suspect]
     Indication: SJOGREN^S SYNDROME
     Route: 048
  2. LEVOTHYROXINE SODIUM TABLETS, USP [Suspect]
     Indication: THYROID DISORDER
     Route: 048
  3. CLARITIN /00917501/ [Concomitant]

REACTIONS (6)
  - Sneezing [Recovered/Resolved]
  - Rhinorrhoea [Recovered/Resolved]
  - Pruritus [Recovered/Resolved]
  - Weight increased [Recovered/Resolved]
  - Lacrimation increased [Recovered/Resolved]
  - Cough [Recovered/Resolved]
